FAERS Safety Report 7257060-2 (Version None)
Quarter: 2011Q1

REPORT INFORMATION
  Report Type: 
  Country: None (occurrence: None)
  Receive Date: 20110129
  Receipt Date: 20100628
  Transmission Date: 20110831
  Serious: No
  Sender: FDA-Public Use
  Company Number: US-ABBOTT-10P-163-0654470-00

PATIENT
  Sex: Female
  Weight: 88.53 kg

DRUGS (3)
  1. DIFLUCAN [Concomitant]
     Indication: PRODUCT USED FOR UNKNOWN INDICATION
     Dates: start: 20091001
  2. HUMIRA [Suspect]
     Indication: PSORIATIC ARTHROPATHY
     Dates: start: 20100101, end: 20100101
  3. HUMIRA [Suspect]
     Indication: PSORIASIS
     Dates: start: 20091001, end: 20100101

REACTIONS (3)
  - INJECTION SITE PAIN [None]
  - POOR QUALITY DRUG ADMINISTERED [None]
  - DRUG INEFFECTIVE [None]
